FAERS Safety Report 6829782-6 (Version None)
Quarter: 2010Q3

REPORT INFORMATION
  Report Type: 
  Country: None (occurrence: None)
  Receive Date: 20100709
  Receipt Date: 20080929
  Transmission Date: 20110219
  Serious: No
  Sender: FDA-Public Use
  Company Number: US-PFIZER INC-2007017781

PATIENT
  Sex: Female
  Weight: 43.54 kg

DRUGS (7)
  1. CHANTIX [Suspect]
     Indication: SMOKING CESSATION THERAPY
     Dates: start: 20070201
  2. PROCARDIA XL [Concomitant]
  3. VYTORIN [Concomitant]
  4. CALCIUM CARBONATE [Concomitant]
  5. ACETYLSALICYLIC ACID [Concomitant]
  6. MULTI-VITAMINS [Concomitant]
  7. OMEGA-3 TRIGLYCERIDES [Concomitant]

REACTIONS (2)
  - EMPHYSEMA [None]
  - NAUSEA [None]
